FAERS Safety Report 10909429 (Version 1)
Quarter: 2015Q1

REPORT INFORMATION
  Report Type: Spontaneous
  Country: PT (occurrence: PT)
  Receive Date: 20150312
  Receipt Date: 20150312
  Transmission Date: 20150721
  Serious: Yes (Hospitalization)
  Sender: FDA-Public Use
  Company Number: PT-CELGENE-PRT-2015030397

PATIENT
  Age: 55 Year
  Sex: Female

DRUGS (2)
  1. ASA [Concomitant]
     Active Substance: ASPIRIN
     Indication: PULMONARY EMBOLISM
     Route: 065
     Dates: start: 2008
  2. REVLIMID [Suspect]
     Active Substance: LENALIDOMIDE
     Indication: PLASMA CELL MYELOMA
     Route: 048
     Dates: start: 201311, end: 201403

REACTIONS (5)
  - Hemiparesis [Recovered/Resolved]
  - Seizure [Recovered/Resolved]
  - Pulmonary embolism [Unknown]
  - Aphasia [Recovering/Resolving]
  - Headache [Unknown]
